FAERS Safety Report 15338395 (Version 1)
Quarter: 2018Q3

REPORT INFORMATION
  Report Type: Spontaneous
  Country: US (occurrence: US)
  Receive Date: 20180831
  Receipt Date: 20180831
  Transmission Date: 20181010
  Serious: Yes (Other)
  Sender: FDA-Public Use
  Company Number: US-TEVA-2018-US-950170

PATIENT
  Sex: Male

DRUGS (1)
  1. PRAVASTATIN. [Suspect]
     Active Substance: PRAVASTATIN

REACTIONS (3)
  - Foreign body in respiratory tract [Unknown]
  - Product use complaint [Unknown]
  - Choking [Unknown]
